FAERS Safety Report 4718384-3 (Version None)
Quarter: 2005Q3

REPORT INFORMATION
  Report Type: 
  Country: None (occurrence: None)
  Receive Date: 20050720
  Receipt Date: 20050712
  Transmission Date: 20060218
  Serious: Yes (Other)
  Sender: FDA-Public Use
  Company Number: PHBS2005CA09996

PATIENT
  Age: 48 Year
  Sex: Male

DRUGS (4)
  1. CLOMIPRAMINE HCL [Suspect]
     Indication: MAJOR DEPRESSION
     Dosage: 75 MG/D
     Route: 065
  2. CLOMIPRAMINE HCL [Suspect]
     Dosage: 150 MG/D
     Route: 065
  3. CARBAMAZEPINE [Suspect]
     Dosage: 200 MG, TID
     Route: 065
  4. CLONAZEPAM [Concomitant]
     Dosage: 1.5 MG, QHS
     Route: 065

REACTIONS (10)
  - BLOOD CHOLESTEROL INCREASED [None]
  - BLOOD TRIGLYCERIDES INCREASED [None]
  - DEPRESSED MOOD [None]
  - DYSLIPIDAEMIA [None]
  - HIGH DENSITY LIPOPROTEIN INCREASED [None]
  - SKIN DISCOLOURATION [None]
  - SUICIDAL IDEATION [None]
  - TOTAL CHOLESTEROL/HDL RATIO DECREASED [None]
  - TYPE III HYPERLIPIDAEMIA [None]
  - XANTHOMA [None]
